FAERS Safety Report 22989027 (Version 13)
Quarter: 2024Q2

REPORT INFORMATION
  Report Type: Report from Study
  Country: PT (occurrence: PT)
  Receive Date: 20230927
  Receipt Date: 20240626
  Transmission Date: 20240716
  Serious: Yes (Other)
  Sender: FDA-Public Use
  Company Number: PT-ABBVIE-5311885

PATIENT
  Age: 73 Year
  Sex: Female

DRUGS (29)
  1. CARBIDOPA\LEVODOPA [Suspect]
     Active Substance: CARBIDOPA\LEVODOPA
     Indication: Parkinson^s disease
     Dosage: 20 MG + 5 MG; FREQUENCY TEXT: MORN:19.5CC;MAIN:5.7CC/H;EXTRA:2CC
     Route: 050
     Dates: start: 20240226, end: 20240304
  2. CARBIDOPA\LEVODOPA [Suspect]
     Active Substance: CARBIDOPA\LEVODOPA
     Dosage: 20 MG + 5 MG?MORN:19.5CC;MAIN:5.9CC/H;EXTRA:4CC
     Route: 050
     Dates: start: 20240621
  3. CARBIDOPA\LEVODOPA [Suspect]
     Active Substance: CARBIDOPA\LEVODOPA
     Dosage: 20 MG + 5 MG; FREQUENCY TEXT: MORN:18.5CC;MAIN:5.4CC/H;EXTRA:2CC; ?LAST ADMIN DATE: 2023
     Route: 050
     Dates: start: 20230919
  4. CARBIDOPA\LEVODOPA [Suspect]
     Active Substance: CARBIDOPA\LEVODOPA
     Dosage: 20 MG + 5 MG?FREQUENCY TEXT: MORN:19.5CC;MAIN:5.4CC/H;EXTRA:2CC
     Route: 050
     Dates: start: 202308, end: 20230904
  5. CARBIDOPA\LEVODOPA [Suspect]
     Active Substance: CARBIDOPA\LEVODOPA
     Dosage: 20 MG + 5 MG?FREQUENCY TEXT: MORN:19.5CC;MAIN:5.9CC/H;EXTRA:3.5CC
     Route: 050
     Dates: start: 20240529, end: 20240621
  6. CARBIDOPA\LEVODOPA [Suspect]
     Active Substance: CARBIDOPA\LEVODOPA
     Dosage: 20 MG + 5 MG
     Route: 050
     Dates: start: 20240304, end: 20240529
  7. CARBIDOPA\LEVODOPA [Suspect]
     Active Substance: CARBIDOPA\LEVODOPA
     Dosage: 20 MG + 5 MG?FREQUENCY TEXT: MORN:19.5CC;MAIN:5.0CC/H;EXTRA:2CC
     Route: 050
     Dates: start: 202309, end: 20230919
  8. CARBIDOPA\LEVODOPA [Suspect]
     Active Substance: CARBIDOPA\LEVODOPA
     Dosage: 20 MG + 5 MG?FREQUENCY TEXT: MORN:19.5CC;MAIN:5.5CC/H;EXTRA:2CC
     Route: 050
     Dates: start: 202306, end: 20230628
  9. CARBIDOPA\LEVODOPA [Suspect]
     Active Substance: CARBIDOPA\LEVODOPA
     Dosage: LAST ADMIN ADMIN : SEP 2023?FREQUENCY TEXT: MORN:19.5CC;MAIN:5.4CC/H;EXTRA:2CC
     Route: 050
     Dates: start: 20230904
  10. CARBIDOPA\LEVODOPA [Suspect]
     Active Substance: CARBIDOPA\LEVODOPA
     Dosage: 20 MG + 5 MG; ?LAST ADMIN DATE: JUN 2023?FREQUENCY TEXT: MORN:19.5CC;MAIN:5.5CC/H;EXTRA:2CC
     Route: 050
     Dates: start: 20230612
  11. CARBIDOPA\LEVODOPA [Suspect]
     Active Substance: CARBIDOPA\LEVODOPA
     Dosage: 20 MG + 5 MG?FREQUENCY TEXT: MORN:19.5CC;MAIN:5.9CC/H;EXTRA:3CC
     Route: 050
  12. CARBIDOPA\LEVODOPA [Suspect]
     Active Substance: CARBIDOPA\LEVODOPA
     Route: 050
  13. CARBIDOPA\LEVODOPA [Suspect]
     Active Substance: CARBIDOPA\LEVODOPA
     Route: 050
  14. CARBIDOPA\LEVODOPA [Suspect]
     Active Substance: CARBIDOPA\LEVODOPA
     Route: 050
  15. CARBIDOPA\LEVODOPA [Suspect]
     Active Substance: CARBIDOPA\LEVODOPA
     Route: 050
  16. CARBIDOPA\LEVODOPA [Suspect]
     Active Substance: CARBIDOPA\LEVODOPA
     Dosage: 20 MG + 5 MG?FREQUENCY TEXT: MORN:19.5CC;MAIN:5.7CC/H;EXTRA:2CC
     Route: 050
     Dates: start: 20230628, end: 202308
  17. CARBIDOPA\LEVODOPA [Suspect]
     Active Substance: CARBIDOPA\LEVODOPA
     Route: 050
  18. CARBIDOPA\LEVODOPA [Suspect]
     Active Substance: CARBIDOPA\LEVODOPA
     Dosage: 20 MG + 5 MG
     Route: 050
     Dates: start: 2023, end: 20240226
  19. CARBIDOPA\LEVODOPA [Suspect]
     Active Substance: CARBIDOPA\LEVODOPA
     Route: 050
  20. QUETIAPINE [Concomitant]
     Active Substance: QUETIAPINE
     Indication: Product used for unknown indication
     Dosage: 1 + 1 + 2
     Dates: start: 202308, end: 202309
  21. QUETIAPINE [Concomitant]
     Active Substance: QUETIAPINE
     Indication: Product used for unknown indication
     Dosage: 1 + 1.5 + 2
     Dates: start: 202309
  22. QUETIAPINE [Concomitant]
     Active Substance: QUETIAPINE
     Indication: Product used for unknown indication
     Dosage: HALF + 2
     Dates: end: 202308
  23. ETHYL LOFLAZEPATE [Concomitant]
     Active Substance: ETHYL LOFLAZEPATE
     Indication: Product used for unknown indication
     Dosage: FORM STRENGTH: 2 MILLIGRAM, FREQUENCY TEXT: 1 TABLET IN SOS,?START DATE TEXT: BEFORE DUODOPA
     Route: 048
  24. SINEMET CR [Concomitant]
     Active Substance: CARBIDOPA\LEVODOPA
     Indication: Product used for unknown indication
     Dosage: FREQUENCY TEXT: AT BEDTIME?1 TABLET
     Route: 065
     Dates: start: 20231030
  25. SINEMET CR [Concomitant]
     Active Substance: CARBIDOPA\LEVODOPA
     Indication: Product used for unknown indication
     Dosage: FREQUENCY TEXT: AT BEDTIME
     Route: 065
     Dates: start: 202310, end: 202310
  26. CLONAZEPAM [Concomitant]
     Active Substance: CLONAZEPAM
     Indication: Product used for unknown indication
     Dosage: 1 TABLET?FORM STRENGTH: 0.5 MILLIGRAM, - FREQUENCY TEXT: AT BEDTIME,?START DATE TEXT: BEFORE DUODOPA
     Route: 048
  27. PERINDOPRIL [Concomitant]
     Active Substance: PERINDOPRIL
     Indication: Hypertension
     Dosage: FORM STRENGTH: 10 MG?FREQUENCY TEXT: AT NIGHT
     Route: 048
     Dates: start: 20230628
  28. RIVASTIGMINE [Concomitant]
     Active Substance: RIVASTIGMINE
     Indication: Product used for unknown indication
     Dosage: 4.6MG/24H, START DATE: BEFORE DUODOPA
     Route: 062
  29. ESCITALOPRAM [Concomitant]
     Active Substance: ESCITALOPRAM OXALATE
     Indication: Product used for unknown indication
     Dosage: 1 TABLET? FORM STRENGTH: 10 MILLIGRAM, START DATE TEXT: BEFORE DUODOPA
     Route: 048

REACTIONS (13)
  - Klebsiella infection [Recovered/Resolved]
  - Orthostatic hypotension [Recovered/Resolved]
  - White blood cell count increased [Recovered/Resolved]
  - Hallucination, visual [Recovered/Resolved]
  - Hyperhidrosis [Recovered/Resolved]
  - Pallor [Recovered/Resolved]
  - Gait disturbance [Not Recovered/Not Resolved]
  - Urine odour abnormal [Recovered/Resolved]
  - Fall [Recovered/Resolved]
  - Gait disturbance [Not Recovered/Not Resolved]
  - Freezing phenomenon [Not Recovered/Not Resolved]
  - Gait inability [Not Recovered/Not Resolved]
  - Gait disturbance [Not Recovered/Not Resolved]

NARRATIVE: CASE EVENT DATE: 20230601
